FAERS Safety Report 5566336-6 (Version None)
Quarter: 2007Q4

REPORT INFORMATION
  Report Type: 
  Country: None (occurrence: None)
  Receive Date: 20071219
  Receipt Date: 20071215
  Transmission Date: 20080405
  Serious: Yes (Other)
  Sender: FDA-Public Use
  Company Number: US-BRISTOL-MYERS SQUIBB COMPANY-13821467

PATIENT
  Age: 71 Year
  Sex: Male
  Weight: 61 kg

DRUGS (3)
  1. IXABEPILONE [Suspect]
     Indication: PROSTATE CANCER
     Route: 042
     Dates: start: 20070515, end: 20070515
  2. MITOXANTRONE [Suspect]
     Indication: PROSTATE CANCER
     Route: 042
     Dates: start: 20070515, end: 20070515
  3. PREDNISONE [Suspect]
     Indication: PROSTATE CANCER
     Route: 048
     Dates: start: 20070515

REACTIONS (1)
  - NEUTROPENIA [None]
